FAERS Safety Report 10027867 (Version 1)
Quarter: 2014Q1

REPORT INFORMATION
  Report Type: Spontaneous
  Country: CN (occurrence: CN)
  Receive Date: 20140321
  Receipt Date: 20140321
  Transmission Date: 20141002
  Serious: Yes (Death)
  Sender: FDA-Public Use
  Company Number: CN-JNJFOC-20140308015

PATIENT
  Age: 50 Year
  Sex: Female

DRUGS (13)
  1. DUROGESIC D-TRANS [Suspect]
     Indication: CANCER PAIN
     Route: 062
  2. DUROGESIC D-TRANS [Suspect]
     Indication: CANCER PAIN
     Dosage: 8.4 MG/PATCH
     Route: 062
     Dates: start: 20131211
  3. MORPHINE [Suspect]
     Indication: BREAKTHROUGH PAIN
     Dosage: 10-20 MG
     Route: 058
  4. MORPHINE [Suspect]
     Indication: BREAKTHROUGH PAIN
     Route: 058
  5. GABAPENTIN [Suspect]
     Indication: ANALGESIC THERAPY
     Route: 065
  6. CELEBREX [Suspect]
     Indication: ANALGESIC THERAPY
     Route: 065
  7. CARBAMAZEPINE [Suspect]
     Indication: ANALGESIC THERAPY
     Route: 065
  8. OXYCONTIN [Suspect]
     Indication: ANALGESIC THERAPY
     Route: 048
  9. OXYCONTIN [Suspect]
     Indication: ANALGESIC THERAPY
     Route: 048
  10. OXYCONTIN [Suspect]
     Indication: ANALGESIC THERAPY
     Route: 048
  11. OXYCONTIN [Suspect]
     Indication: ANALGESIC THERAPY
     Route: 048
  12. DEANXIT [Suspect]
     Indication: ANALGESIC THERAPY
     Route: 065
  13. MORPHINE [Suspect]
     Indication: BREAKTHROUGH PAIN
     Route: 048

REACTIONS (2)
  - Malignant neoplasm progression [Fatal]
  - Inadequate analgesia [Not Recovered/Not Resolved]
